FAERS Safety Report 7913135-3 (Version None)
Quarter: 2011Q4

REPORT INFORMATION
  Report Type: 
  Country: None (occurrence: None)
  Receive Date: 20111114
  Receipt Date: 20111031
  Transmission Date: 20120403
  Serious: Yes (Hospitalization, Other)
  Sender: FDA-Public Use
  Company Number: US-ELI_LILLY_AND_COMPANY-US201111001779

PATIENT
  Sex: Female

DRUGS (6)
  1. LIPITOR [Concomitant]
     Dosage: 20 MG, QD
  2. MORPHINE [Concomitant]
  3. PERCOCET [Concomitant]
  4. LISINOPRIL [Concomitant]
     Dosage: 40 MG, QD
  5. ZOLOFT [Concomitant]
     Dosage: 25 MG, QD
  6. FORTEO [Suspect]
     Indication: OSTEOPOROSIS
     Dosage: 20 UG, QD
     Dates: start: 20110919, end: 20111031

REACTIONS (2)
  - FALL [None]
  - HIP FRACTURE [None]
